FAERS Safety Report 21475521 (Version 2)
Quarter: 2023Q1

REPORT INFORMATION
  Report Type: Other
  Country: EG (occurrence: None)
  Receive Date: 20221019
  Receipt Date: 20230315
  Transmission Date: 20230417
  Serious: Yes (Other)
  Sender: FDA-Public Use
  Company Number: EG-ROCHE-3199447

PATIENT
  Sex: Female
  Weight: 77 kg

DRUGS (12)
  1. OCRELIZUMAB [Suspect]
     Active Substance: OCRELIZUMAB
     Indication: Primary progressive multiple sclerosis
     Dosage: 10/FEB/2020, 24/FEB/2020
     Route: 042
     Dates: start: 20200210
  2. OCRELIZUMAB [Suspect]
     Active Substance: OCRELIZUMAB
     Dosage: 30/SEP/2020
     Route: 042
     Dates: start: 20210327, end: 20210327
  3. GILENYA [Concomitant]
     Active Substance: FINGOLIMOD HYDROCHLORIDE
     Indication: Adverse event
     Route: 048
  4. FINGOLIMOD [Concomitant]
     Active Substance: FINGOLIMOD
     Route: 048
     Dates: start: 2022
  5. LEVOCARNITINE [Concomitant]
     Active Substance: LEVOCARNITINE
     Route: 048
  6. TIZANIDINE [Concomitant]
     Active Substance: TIZANIDINE
     Route: 048
     Dates: start: 2021
  7. DELTAVIT [Concomitant]
     Route: 060
     Dates: start: 2021
  8. LAMICTAL [Concomitant]
     Active Substance: LAMOTRIGINE
     Route: 048
     Dates: start: 2021
  9. PEPZOL (EGYPT) [Concomitant]
  10. TRIPTAL [Concomitant]
     Route: 048
  11. QUITAPEX [Concomitant]
     Route: 048
  12. AMITRIPTYLINE HYDROCHLORIDE [Concomitant]
     Active Substance: AMITRIPTYLINE HYDROCHLORIDE
     Route: 048
     Dates: start: 2021

REACTIONS (1)
  - Pulmonary fibrosis [Unknown]

NARRATIVE: CASE EVENT DATE: 20220101
